FAERS Safety Report 4775409-7 (Version None)
Quarter: 2005Q3

REPORT INFORMATION
  Report Type: 
  Country: None (occurrence: None)
  Receive Date: 20050914
  Receipt Date: 20050314
  Transmission Date: 20060218
  Serious: Yes (Hospitalization)
  Sender: FDA-Public Use
  Company Number: 163-20785-05030335

PATIENT
  Age: 55 Year
  Sex: Female
  Weight: 50 kg

DRUGS (7)
  1. THALOMID [Suspect]
     Indication: NEUROENDOCRINE CARCINOMA
     Dosage: 100 MG, DAILY, ORAL
     Route: 048
     Dates: start: 20020621, end: 20030703
  2. TEMODAR [Suspect]
     Indication: NEUROENDOCRINE CARCINOMA
     Dosage: 230 MG, TIMES 7 DAYS, WEEKS 1 + 3 OF 28 DAYS CYCLE, ORAL
     Route: 048
     Dates: start: 20020621, end: 20030626
  3. LASIX [Concomitant]
  4. PEPCID [Concomitant]
  5. VIOXX [Concomitant]
  6. SYNTHROID [Concomitant]
  7. OCTREOTIDE ACETATE [Concomitant]

REACTIONS (3)
  - DISEASE PROGRESSION [None]
  - LYMPHOPENIA [None]
  - PNEUMOCYSTIS JIROVECI PNEUMONIA [None]
